FAERS Safety Report 7432830-6 (Version None)
Quarter: 2011Q2

REPORT INFORMATION
  Report Type: 
  Country: None (occurrence: None)
  Receive Date: 20110422
  Receipt Date: 20110421
  Transmission Date: 20111010
  Serious: Yes (Disabling)
  Sender: FDA-Public Use
  Company Number: IT-ROCHE-772669

PATIENT
  Sex: Female

DRUGS (3)
  1. LANSOPRAZOLE [Concomitant]
  2. AVASTIN [Suspect]
     Route: 042
     Dates: start: 20101001, end: 20110408
  3. PACLITAXEL [Concomitant]
     Dates: start: 20101001, end: 20110420

REACTIONS (1)
  - OSTEONECROSIS OF JAW [None]
